FAERS Safety Report 23891441 (Version 6)
Quarter: 2024Q3

REPORT INFORMATION
  Report Type: Spontaneous
  Country: DE (occurrence: DE)
  Receive Date: 20240523
  Receipt Date: 20240705
  Transmission Date: 20241016
  Serious: Yes (Hospitalization, Other)
  Sender: ABBVIE
  Company Number: DE-TAKEDA-2024TUS013099

PATIENT
  Sex: Male

DRUGS (5)
  1. MESALAMINE [Suspect]
     Active Substance: MESALAMINE
     Indication: Colitis ulcerative
     Route: 065
  2. INFLIXIMAB [Suspect]
     Active Substance: INFLIXIMAB
     Indication: Product used for unknown indication
     Dosage: UNK
     Route: 065
  3. CORTISONE [Suspect]
     Active Substance: CORTISONE
     Indication: Product used for unknown indication
     Dosage: UNK
     Route: 065
  4. ENTYVIO [Suspect]
     Active Substance: VEDOLIZUMAB
     Indication: Colitis ulcerative
     Dosage: FINGER FLANGE,NEEDLE SAFETY DEVICE (NSD),PLUNGER,PRE-FILLED SYRINGE
     Route: 058
  5. Cortiment [Concomitant]
     Indication: Product used for unknown indication

REACTIONS (13)
  - Alopecia [Unknown]
  - Abdominal pain upper [Unknown]
  - Pancreatitis [Unknown]
  - Hypoaesthesia [Unknown]
  - Nasopharyngitis [Unknown]
  - Pneumonia [Unknown]
  - Colitis ulcerative [Unknown]
  - Headache [Unknown]
  - Fatigue [Unknown]
  - Bronchitis [Unknown]
  - Chronic obstructive pulmonary disease [Unknown]
  - Lip dry [Unknown]
  - Dry skin [Unknown]
